FAERS Safety Report 17977288 (Version 3)
Quarter: 2021Q2

REPORT INFORMATION
  Report Type: Spontaneous
  Country: US (occurrence: US)
  Receive Date: 20200703
  Receipt Date: 20210407
  Transmission Date: 20210717
  Serious: Yes (Hospitalization, Other)
  Sender: FDA-Public Use
  Company Number: US-SHIRE-US202021436

PATIENT
  Sex: Female
  Weight: 104.31 kg

DRUGS (1)
  1. TAKHZYRO [Suspect]
     Active Substance: LANADELUMAB-FLYO
     Indication: HEREDITARY ANGIOEDEMA
     Dosage: 300 MILLIGRAM, 1X/2WKS
     Route: 058

REACTIONS (6)
  - Product dose omission issue [Recovering/Resolving]
  - Weight increased [Unknown]
  - Duodenitis [Unknown]
  - Gastric ulcer [Unknown]
  - Gastritis [Unknown]
  - Hereditary angioedema [Recovering/Resolving]
